FAERS Safety Report 7986233-6 (Version None)
Quarter: 2011Q4

REPORT INFORMATION
  Report Type: 
  Country: None (occurrence: None)
  Receive Date: 20111216
  Receipt Date: 20111207
  Transmission Date: 20120403
  Serious: Yes (Other)
  Sender: FDA-Public Use
  Company Number: BR-GLAXOSMITHKLINE-B0769515A

PATIENT

DRUGS (1)
  1. CLOBETASOL PROPIONATE [Suspect]
     Route: 064

REACTIONS (3)
  - CARDIOMEGALY [None]
  - FOETAL EXPOSURE DURING PREGNANCY [None]
  - DUCTUS ARTERIOSUS PREMATURE CLOSURE [None]
